FAERS Safety Report 15656139 (Version 4)
Quarter: 2019Q2

REPORT INFORMATION
  Report Type: Report from Study
  Country: US (occurrence: US)
  Receive Date: 20181126
  Receipt Date: 20190621
  Transmission Date: 20190711
  Serious: Yes (Hospitalization)
  Sender: FDA-Public Use
  Company Number: PHEH2018US049184

PATIENT
  Sex: Male

DRUGS (1)
  1. ENTRESTO [Suspect]
     Active Substance: SACUBITRIL\VALSARTAN
     Indication: CARDIAC FAILURE
     Dosage: UNK UNK, BID
     Route: 048

REACTIONS (8)
  - Chest discomfort [Unknown]
  - Weight fluctuation [Unknown]
  - Poor quality sleep [Unknown]
  - Hypertension [Unknown]
  - Blood potassium decreased [Unknown]
  - Stress [Unknown]
  - Dyspnoea [Unknown]
  - Fatigue [Unknown]
